FAERS Safety Report 6144546-7 (Version None)
Quarter: 2009Q2

REPORT INFORMATION
  Report Type: 
  Country: None (occurrence: None)
  Receive Date: 20090406
  Receipt Date: 20090327
  Transmission Date: 20091009
  Serious: Yes (Other)
  Sender: FDA-Public Use
  Company Number: PHHY2009CR11787

PATIENT
  Age: 51 Year
  Sex: Female

DRUGS (1)
  1. DIOVAN HCT [Suspect]
     Indication: HYPERTENSION
     Dosage: 160/12.5 MG/DAY
     Route: 048

REACTIONS (6)
  - AMENORRHOEA [None]
  - ENDOMETRIAL HYPERTROPHY [None]
  - GASTRITIS [None]
  - HYPERSENSITIVITY [None]
  - HYSTERECTOMY [None]
  - UTERINE DILATION AND CURETTAGE [None]
